FAERS Safety Report 7901459-5 (Version None)
Quarter: 2011Q4

REPORT INFORMATION
  Report Type: 
  Country: None (occurrence: None)
  Receive Date: 20111108
  Receipt Date: 20111031
  Transmission Date: 20120403
  Serious: Yes (Hospitalization, Other)
  Sender: FDA-Public Use
  Company Number: US-BAYER-201032409NA

PATIENT
  Age: 21 Year
  Sex: Female
  Weight: 63.492 kg

DRUGS (3)
  1. YAZ [Suspect]
     Indication: ORAL CONTRACEPTION
     Dosage: UNK UNK, QD
     Route: 048
     Dates: start: 20080601, end: 20080801
  2. ALEVE [Concomitant]
  3. YASMIN [Suspect]
     Indication: ORAL CONTRACEPTION
     Dosage: UNK UNK, QD
     Dates: start: 20080601, end: 20080804

REACTIONS (9)
  - PLEURITIC PAIN [None]
  - IRON DEFICIENCY ANAEMIA [None]
  - RESPIRATORY DISTRESS [None]
  - PULMONARY CONGESTION [None]
  - CARDIAC FAILURE CONGESTIVE [None]
  - DYSPNOEA [None]
  - PULMONARY EMBOLISM [None]
  - PAIN [None]
  - ABDOMINAL PAIN [None]
